FAERS Safety Report 9484418 (Version 2)
Quarter: 2015Q1

REPORT INFORMATION
  Report Type: Spontaneous
  Country: PK (occurrence: PK)
  Receive Date: 20130828
  Receipt Date: 20150319
  Transmission Date: 20150721
  Serious: Yes (Death, Other)
  Sender: FDA-Public Use
  Company Number: PK-ROCHE-1267516

PATIENT
  Age: 8 Year
  Sex: Male

DRUGS (3)
  1. METHOTREXATE [Concomitant]
     Active Substance: METHOTREXATE
  2. ACTEMRA [Suspect]
     Active Substance: TOCILIZUMAB
     Indication: JUVENILE IDIOPATHIC ARTHRITIS
     Route: 042
     Dates: start: 20130712, end: 20130822
  3. NAPROXEN. [Concomitant]
     Active Substance: NAPROXEN
     Route: 065

REACTIONS (7)
  - Haematemesis [Fatal]
  - Hepatitis [Unknown]
  - Pyrexia [Fatal]
  - Hepatic encephalopathy [Fatal]
  - Vomiting [Not Recovered/Not Resolved]
  - Shock [Fatal]
  - Pulmonary haemorrhage [Fatal]

NARRATIVE: CASE EVENT DATE: 20130822
